FAERS Safety Report 7451259-8 (Version None)
Quarter: 2011Q2

REPORT INFORMATION
  Report Type: 
  Country: None (occurrence: None)
  Receive Date: 20110422
  Receipt Date: 20110408
  Transmission Date: 20111010
  Serious: No
  Sender: FDA-Public Use
  Company Number: SPI201100065

PATIENT
  Age: 58 Year
  Sex: Female
  Weight: 63 kg

DRUGS (2)
  1. AMITIZA [Suspect]
     Indication: CONSTIPATION
     Dosage: 24 MCG, BID, ORAL
     Route: 048
     Dates: start: 20090101
  2. PENICILLIN [Suspect]
     Indication: SINUSITIS
     Dosage: ORAL
     Route: 048
     Dates: start: 20110301, end: 20110301

REACTIONS (7)
  - PRURITUS GENERALISED [None]
  - DYSPHAGIA [None]
  - PARAESTHESIA ORAL [None]
  - SINUSITIS [None]
  - DRY MOUTH [None]
  - CHEST DISCOMFORT [None]
  - OROPHARYNGEAL PAIN [None]
